FAERS Safety Report 25080133 (Version 2)
Quarter: 2025Q2

REPORT INFORMATION
  Report Type: Spontaneous
  Country: DE (occurrence: DE)
  Receive Date: 20250314
  Receipt Date: 20250401
  Transmission Date: 20250716
  Serious: Yes (Hospitalization, Other)
  Sender: SANDOZ
  Company Number: DE-SANDOZ-SDZ2025DE015648

PATIENT

DRUGS (2)
  1. METRONIDAZOLE [Suspect]
     Active Substance: METRONIDAZOLE
     Indication: Antibiotic therapy
     Route: 065
     Dates: start: 20250205
  2. CIPROFLOXACIN [Suspect]
     Active Substance: CIPROFLOXACIN
     Indication: Diverticulitis
     Route: 065
     Dates: start: 20250205

REACTIONS (19)
  - Mental disorder [Unknown]
  - Choking [Unknown]
  - Claustrophobia [Unknown]
  - Panic attack [Unknown]
  - Cervicogenic headache [Unknown]
  - Malaise [Unknown]
  - Burning sensation [Unknown]
  - Dysbiosis [Recovering/Resolving]
  - General physical health deterioration [Unknown]
  - Abdominal pain lower [Unknown]
  - Insomnia [Unknown]
  - Cough [Recovered/Resolved]
  - Depression [Unknown]
  - Back pain [Unknown]
  - Arthralgia [Unknown]
  - Gait disturbance [Unknown]
  - Dyspnoea [Unknown]
  - Hypersensitivity [Unknown]
  - Therapeutic product effect decreased [Unknown]

NARRATIVE: CASE EVENT DATE: 20250201
